FAERS Safety Report 6161127-X (Version None)
Quarter: 2009Q2

REPORT INFORMATION
  Report Type: 
  Country: None (occurrence: None)
  Receive Date: 20090421
  Receipt Date: 20070405
  Transmission Date: 20091009
  Serious: Yes (Hospitalization, Other)
  Sender: FDA-Public Use
  Company Number: US-ASTRAZENECA-2006UW21039

PATIENT
  Age: 17102 Day
  Sex: Female
  Weight: 94.5 kg

DRUGS (24)
  1. SEROQUEL [Suspect]
     Indication: HALLUCINATIONS, MIXED
     Dosage: 100 MG - 600 MG
     Route: 048
     Dates: start: 19981119
  2. SEROQUEL [Suspect]
     Route: 048
  3. GEODON [Concomitant]
  4. HALDOL [Concomitant]
  5. RISPERDAL [Concomitant]
  6. THORAZINE [Concomitant]
  7. TRILAFON [Concomitant]
  8. ZYPREXA [Concomitant]
  9. GLUCOPHAGE [Concomitant]
  10. WELLBUTRIN [Concomitant]
  11. GLUCOTROL [Concomitant]
  12. SYNTHROID [Concomitant]
  13. REMERON [Concomitant]
  14. HYDROCHLOROTHIAZIDE [Concomitant]
  15. DEPAKOTE [Concomitant]
  16. INSULIN NOVOLIN [Concomitant]
  17. AVANDIA [Concomitant]
  18. LORTAB [Concomitant]
  19. LIPITOR [Concomitant]
  20. XANAX [Concomitant]
  21. NEXIUM [Concomitant]
  22. SOMA [Concomitant]
  23. RESTORIL [Concomitant]
  24. INDERAL [Concomitant]

REACTIONS (26)
  - ASTHENIA [None]
  - BACK PAIN [None]
  - BEHAVIOURAL AND PSYCHIATRIC SYMPTOMS OF DEMENTIA [None]
  - CATARACT [None]
  - CONTUSION [None]
  - CONVULSION [None]
  - COUGH [None]
  - DIABETES MELLITUS [None]
  - DIABETIC COMPLICATION [None]
  - DIZZINESS [None]
  - GASTROOESOPHAGEAL REFLUX DISEASE [None]
  - HALLUCINATION, AUDITORY [None]
  - HYPERGLYCAEMIA [None]
  - JOINT INJURY [None]
  - KERATOCONJUNCTIVITIS SICCA [None]
  - KETOACIDOSIS [None]
  - MENISCUS REMOVAL [None]
  - ONYCHOMYCOSIS [None]
  - PAIN IN EXTREMITY [None]
  - SCHIZOAFFECTIVE DISORDER [None]
  - SINUSITIS [None]
  - SUICIDAL IDEATION [None]
  - TEETHING [None]
  - TENDONITIS [None]
  - UPPER RESPIRATORY TRACT INFECTION [None]
  - VISION BLURRED [None]
